FAERS Safety Report 4333295-3 (Version None)
Quarter: 2004Q2

REPORT INFORMATION
  Report Type: 
  Country: None (occurrence: None)
  Receive Date: 20040405
  Receipt Date: 20040324
  Transmission Date: 20050107
  Serious: Yes (Other)
  Sender: FDA-Public Use
  Company Number: 2004020198

PATIENT
  Age: 55 Year
  Sex: Female
  Weight: 63.5036 kg

DRUGS (7)
  1. BENGAY PAIN RELIEVING PATCH (METHOL) [Suspect]
     Indication: BACK PAIN
     Dosage: ONE PATCH Q 8 HRS., TOPICAL
     Route: 061
     Dates: start: 20040321, end: 20040323
  2. PHENYTOIN SODIUM [Concomitant]
  3. VALPROATE SODIUM [Concomitant]
  4. METOPROLOL SUCCINATE [Concomitant]
  5. LEVOTHYROXINE SODIUM [Concomitant]
  6. CLONAZEPAM [Concomitant]
  7. PRIMIDONE [Concomitant]

REACTIONS (1)
  - GRAND MAL CONVULSION [None]
